FAERS Safety Report 23794905 (Version 7)
Quarter: 2025Q1

REPORT INFORMATION
  Report Type: Spontaneous
  Country: CZ (occurrence: CZ)
  Receive Date: 20240429
  Receipt Date: 20250214
  Transmission Date: 20250409
  Serious: Yes (Hospitalization, Other)
  Sender: MYLAN
  Company Number: CZ-MYLANLABS-2024M1037841

PATIENT
  Age: 39 Year
  Sex: Male

DRUGS (3)
  1. PREGABALIN [Suspect]
     Active Substance: PREGABALIN
     Indication: Personality disorder
     Dosage: 600 MILLIGRAM, BID (PER DAY IN TWO DIVIDED DOSES)
     Route: 065
     Dates: start: 202301
  2. PREGABALIN [Suspect]
     Active Substance: PREGABALIN
     Indication: Generalised anxiety disorder
     Dosage: 2400 MILLIGRAM, BID (ONE MORNING DOSE, ALSO BY SNIFFING, ARBITRARILY INCREASED THE DOSE)
     Route: 065
     Dates: start: 202301
  3. PREGABALIN [Suspect]
     Active Substance: PREGABALIN
     Route: 065

REACTIONS (8)
  - Aggression [Unknown]
  - Drug dependence [Unknown]
  - Incorrect route of product administration [Unknown]
  - Drug abuse [Unknown]
  - Withdrawal syndrome [Unknown]
  - Intentional overdose [Unknown]
  - Intentional product misuse [Unknown]
  - Psychiatric decompensation [Unknown]
